FAERS Safety Report 8129261-2 (Version None)
Quarter: 2012Q1

REPORT INFORMATION
  Report Type: 
  Country: None (occurrence: None)
  Receive Date: 20120210
  Receipt Date: 20111123
  Transmission Date: 20120608
  Serious: No
  Sender: FDA-Public Use
  Company Number: US-BRISTOL-MYERS SQUIBB COMPANY-16245946

PATIENT
  Age: 49 Year
  Sex: Male

DRUGS (1)
  1. ORENCIA [Suspect]
     Dosage: LAST INFUSION WAS 14 NOV 2011

REACTIONS (2)
  - ASTHENIA [None]
  - PAIN [None]
